FAERS Safety Report 9458695 (Version 1)
Quarter: 2013Q3

REPORT INFORMATION
  Report Type: Spontaneous
  Country: US (occurrence: None)
  Receive Date: 20130813
  Receipt Date: 20130813
  Transmission Date: 20140515
  Serious: No
  Sender: FDA-Public Use
  Company Number: None

PATIENT
  Age: 76 Year
  Sex: Female
  Weight: 49.44 kg

DRUGS (13)
  1. PROLIA [Suspect]
     Indication: OSTEOPOROSIS
     Dates: end: 20130415
  2. HYDROCHLOROTHIAZIDE [Concomitant]
  3. LISINOPRIL [Concomitant]
  4. CHOLESTOFF [Concomitant]
  5. MULTI/VITAMIN [Concomitant]
  6. FLUOCINOMIDE [Concomitant]
  7. VITAMIN [Concomitant]
  8. ESTER-C [Concomitant]
  9. CO-Q10 [Concomitant]
  10. CINNAMON [Concomitant]
  11. CALCIUM CITRATE [Concomitant]
  12. VITAMIN B12 [Concomitant]
  13. OMEGA-3 [Concomitant]

REACTIONS (9)
  - Injection site pruritus [None]
  - Scab [None]
  - Dry skin [None]
  - Dry skin [None]
  - Pain [None]
  - Gait disturbance [None]
  - Myalgia [None]
  - Incorrect route of drug administration [None]
  - Injection site erythema [None]
